FAERS Safety Report 14537328 (Version 2)
Quarter: 2018Q1

REPORT INFORMATION
  Report Type: Report from Study
  Country: LT (occurrence: LT)
  Receive Date: 20180215
  Receipt Date: 20180302
  Transmission Date: 20180509
  Serious: Yes (Other)
  Sender: FDA-Public Use
  Company Number: LT-SHIRE-LT201737214

PATIENT

DRUGS (3)
  1. IMMUNATE STIM PLUS [Suspect]
     Active Substance: ANTIHEMOPHILIC FACTOR HUMAN
     Indication: PROPHYLAXIS
     Route: 065
  2. RECOMBINATE [Suspect]
     Active Substance: ANTIHEMOPHILIC FACTOR, HUMAN RECOMBINANT
     Indication: PROPHYLAXIS
     Route: 065
  3. FACTOR VIII INHIBITOR BYPASSING FRACTION; BAXJECT II NF [Suspect]
     Active Substance: ANTI-INHIBITOR COAGULANT COMPLEX
     Indication: HAEMOPHILIA
     Dosage: 4000 UNK, UNK
     Route: 042

REACTIONS (11)
  - Epistaxis [Unknown]
  - Swelling [Unknown]
  - Pain [Unknown]
  - Haemorrhage [Unknown]
  - Arthralgia [Unknown]
  - Contusion [Unknown]
  - Gingival bleeding [Unknown]
  - Gait disturbance [Unknown]
  - Erythema [Unknown]
  - Deformity [Unknown]
  - Musculoskeletal pain [Unknown]

NARRATIVE: CASE EVENT DATE: 20170301
